FAERS Safety Report 25046251 (Version 1)
Quarter: 2025Q1

REPORT INFORMATION
  Report Type: Spontaneous
  Country: MX (occurrence: MX)
  Receive Date: 20250306
  Receipt Date: 20250306
  Transmission Date: 20250408
  Serious: Yes (Death, Other)
  Sender: SANOFI AVENTIS
  Company Number: MX-SANOFI-02434784

PATIENT
  Age: 58 Year

DRUGS (15)
  1. SARCLISA [Suspect]
     Active Substance: ISATUXIMAB-IRFC
     Dates: start: 20250207, end: 202502
  2. Bizmi [Concomitant]
  3. DEXAMETHASONE [Concomitant]
     Active Substance: DEXAMETHASONE
  4. APIXABAN [Concomitant]
     Active Substance: APIXABAN
  5. LOPERAMIDE [Concomitant]
     Active Substance: LOPERAMIDE
  6. SPIRONOLACTONE [Concomitant]
     Active Substance: SPIRONOLACTONE
  7. HYDROCHLOROTHIAZIDE [Concomitant]
     Active Substance: HYDROCHLOROTHIAZIDE
  8. DAPAGLIFLOZIN [Concomitant]
     Active Substance: DAPAGLIFLOZIN
  9. LOSARTAN [Concomitant]
     Active Substance: LOSARTAN
  10. LENALIDOMIDE [Concomitant]
     Active Substance: LENALIDOMIDE
  11. ALLOPURINOL [Concomitant]
     Active Substance: ALLOPURINOL
  12. ACYCLOVIR [Concomitant]
     Active Substance: ACYCLOVIR
  13. ASPIRIN [Concomitant]
     Active Substance: ASPIRIN
  14. ONDANSETRON [Concomitant]
     Active Substance: ONDANSETRON
  15. ACETAMINOPHEN\TRAMADOL [Concomitant]
     Active Substance: ACETAMINOPHEN\TRAMADOL

REACTIONS (1)
  - Death [Fatal]

NARRATIVE: CASE EVENT DATE: 20250219
